FAERS Safety Report 13926215 (Version 4)
Quarter: 2018Q1

REPORT INFORMATION
  Report Type: Spontaneous
  Country: US (occurrence: US)
  Receive Date: 20170831
  Receipt Date: 20180126
  Transmission Date: 20180508
  Serious: Yes (Death, Other)
  Sender: FDA-Public Use
  Company Number: US-PFIZER INC-2017373790

PATIENT
  Age: 73 Year
  Sex: Female
  Weight: 77.98 kg

DRUGS (3)
  1. IBRANCE [Suspect]
     Active Substance: PALBOCICLIB
     Indication: BREAST CANCER METASTATIC
     Dosage: 125 MG, CYCLIC (ONCE DAILY, 3 WEEKS ON OR ON DAYS 1 TO 21, AND 1 WEEK OFF)
     Route: 048
     Dates: start: 20170809, end: 20170828
  2. COUMADIN [Suspect]
     Active Substance: WARFARIN SODIUM
     Dosage: UNK
  3. IBRANCE [Suspect]
     Active Substance: PALBOCICLIB
     Dosage: 100 MG, CYCLIC (DAYS 1 TO 21, EVERY 28 DAYS)
     Route: 048
     Dates: end: 201801

REACTIONS (4)
  - Death [Fatal]
  - Breast haemorrhage [Unknown]
  - Diarrhoea [Unknown]
  - Alopecia [Unknown]

NARRATIVE: CASE EVENT DATE: 2017
